FAERS Safety Report 22287476 (Version 1)
Quarter: 2023Q2

REPORT INFORMATION
  Report Type: Report from Study
  Country: US (occurrence: US)
  Receive Date: 20230505
  Receipt Date: 20230505
  Transmission Date: 20230721
  Serious: Yes (Hospitalization)
  Sender: FDA-Public Use
  Company Number: US-ABBVIE-4753416

PATIENT
  Sex: Female

DRUGS (1)
  1. VENCLEXTA [Suspect]
     Active Substance: VENETOCLAX
     Indication: B-cell small lymphocytic lymphoma
     Dosage: TAKE 4 TABLET(S) BY MOUTH DAILY?FORM STRENGTH: 100 MILLIGRAM
     Route: 048

REACTIONS (2)
  - Rehabilitation therapy [Unknown]
  - Product dispensing error [Unknown]
